FAERS Safety Report 8829770 (Version 1)
Quarter: 2012Q4

REPORT INFORMATION
  Report Type: Report from Study
  Country: FR (occurrence: FR)
  Receive Date: 20121008
  Receipt Date: 20121008
  Transmission Date: 20130627
  Serious: Yes (Death)
  Sender: FDA-Public Use
  Company Number: FR-ROCHE-1029687

PATIENT
  Age: 70 Year
  Sex: Male
  Weight: 108 kg

DRUGS (8)
  1. CELLCEPT [Suspect]
     Indication: TRANSPLANT REJECTION
     Route: 002
     Dates: start: 20111202, end: 20111215
  2. CYCLOSPORINE [Suspect]
     Indication: TRANSPLANT REJECTION
     Route: 002
     Dates: start: 20111202, end: 20111215
  3. PREDNISONE [Suspect]
     Indication: TRANSPLANT REJECTION
     Route: 002
     Dates: start: 20111203, end: 20111215
  4. CORDARONE [Concomitant]
     Route: 048
  5. CARDENSIEL [Concomitant]
     Route: 048
  6. LASILIX [Concomitant]
     Route: 048
     Dates: start: 20111213
  7. ALBUMIN 20% [Concomitant]
     Route: 042
     Dates: start: 20111213
  8. HEPARIN [Concomitant]
     Route: 065
     Dates: start: 20111212

REACTIONS (4)
  - Arrhythmia [Fatal]
  - Atrial fibrillation [Fatal]
  - Cardiac failure [Fatal]
  - Wound secretion [Fatal]
